FAERS Safety Report 20470550 (Version 1)
Quarter: 2022Q1

REPORT INFORMATION
  Report Type: Report from Study
  Country: AR (occurrence: AR)
  Receive Date: 20220214
  Receipt Date: 20220214
  Transmission Date: 20220423
  Serious: Yes (Other)
  Sender: FDA-Public Use
  Company Number: AR-NOVARTISPH-PHHY2018AR067885

PATIENT
  Sex: Female

DRUGS (10)
  1. DIOVAN [Suspect]
     Active Substance: VALSARTAN
     Indication: Hypertension
     Dosage: 80 MG(5 YEARS AGO)
     Route: 065
  2. DIOVAN [Suspect]
     Active Substance: VALSARTAN
     Dosage: 160 MG, QD
     Route: 065
     Dates: end: 2020
  3. DIOVAN [Suspect]
     Active Substance: VALSARTAN
     Dosage: 80 MG, QD
     Route: 065
     Dates: start: 2020, end: 2020
  4. DIOVAN [Suspect]
     Active Substance: VALSARTAN
     Dosage: 160 MG (1 DOSAGE FORM), QD APPROXIMATELY 10 YEARS AGO)
     Route: 065
     Dates: end: 2020
  5. DIOVAN [Suspect]
     Active Substance: VALSARTAN
     Dosage: 80 MG, QD, (DOSAGE FORM) APPROXIMATELY 5 MONTHS AGO
     Route: 065
     Dates: start: 2020, end: 2020
  6. DIOVAN [Suspect]
     Active Substance: VALSARTAN
     Dosage: UNK
     Route: 065
  7. LESCOL XL [Suspect]
     Active Substance: FLUVASTATIN SODIUM
     Indication: Blood cholesterol
     Dosage: 1 DOSAGE FORM, QD (AT NIGHT)
     Route: 065
  8. LEVOTHYROXINE [Concomitant]
     Active Substance: LEVOTHYROXINE
     Indication: Hypothyroidism
     Dosage: UNK
     Route: 065
  9. HESPERIDIN [Concomitant]
     Active Substance: HESPERIDIN
     Indication: Peripheral vascular disorder
     Dosage: UNK
     Route: 065
  10. DIOSMIN [Concomitant]
     Active Substance: DIOSMIN
     Indication: Peripheral vascular disorder
     Dosage: UNK
     Route: 065

REACTIONS (10)
  - Cataract [Unknown]
  - Glaucoma [Unknown]
  - Blood pressure increased [Unknown]
  - Weight increased [Unknown]
  - Blood pressure fluctuation [Recovering/Resolving]
  - Fatigue [Unknown]
  - Neck pain [Unknown]
  - Pain [Unknown]
  - Memory impairment [Unknown]
  - Wrong technique in product usage process [Unknown]
